FAERS Safety Report 4388986-5 (Version None)
Quarter: 2004Q3

REPORT INFORMATION
  Report Type: 
  Country: None (occurrence: None)
  Receive Date: 20040701
  Receipt Date: 20040701
  Transmission Date: 20050211
  Serious: Yes (Hospitalization)
  Sender: FDA-Public Use
  Company Number: None

PATIENT
  Sex: Male
  Weight: 94.5 kg

DRUGS (1)
  1. GATIFLOXACIN [Suspect]
     Indication: LOCALISED INFECTION
     Dosage: 400 MG PO X2 DOSES
     Route: 048

REACTIONS (3)
  - BLOOD PRESSURE ORTHOSTATIC [None]
  - HYPERHIDROSIS [None]
  - SYNCOPE [None]
